FAERS Safety Report 25207393 (Version 1)
Quarter: 2025Q2

REPORT INFORMATION
  Report Type: Spontaneous
  Country: CN (occurrence: CN)
  Receive Date: 20250417
  Receipt Date: 20250417
  Transmission Date: 20250717
  Serious: Yes (Hospitalization)
  Sender: ACCORD
  Company Number: None

PATIENT
  Age: 73 Year
  Sex: Female

DRUGS (1)
  1. TRASTUZUMAB [Suspect]
     Active Substance: TRASTUZUMAB
     Indication: Breast cancer
     Dosage: 360 MILLIGRAM, QD, STRENGTH?: 150 MILLIGRAM
     Route: 042
     Dates: start: 20250324, end: 20250324

REACTIONS (1)
  - Pneumonia [Recovering/Resolving]

NARRATIVE: CASE EVENT DATE: 20250326
